FAERS Safety Report 21003366 (Version 1)
Quarter: 2022Q2

REPORT INFORMATION
  Report Type: Report from Study
  Country: US (occurrence: US)
  Receive Date: 20220624
  Receipt Date: 20220624
  Transmission Date: 20220720
  Serious: Yes (Hospitalization)
  Sender: FDA-Public Use
  Company Number: US-SERVIER-S22006492

PATIENT

DRUGS (1)
  1. TIBSOVO [Suspect]
     Active Substance: IVOSIDENIB
     Indication: Cholangiocarcinoma
     Dosage: 500 MG, DAILY
     Route: 048
     Dates: start: 20220331, end: 20220606

REACTIONS (5)
  - Dyspnoea [Recovered/Resolved]
  - Pleural effusion [Recovered/Resolved]
  - Nausea [Unknown]
  - Vomiting [Unknown]
  - Lethargy [Unknown]

NARRATIVE: CASE EVENT DATE: 20220101
